FAERS Safety Report 11091501 (Version 1)
Quarter: 2015Q2

REPORT INFORMATION
  Report Type: Spontaneous
  Country: NL (occurrence: NL)
  Receive Date: 20150505
  Receipt Date: 20150505
  Transmission Date: 20150821
  Serious: Yes (Other)
  Sender: FDA-Public Use
  Company Number: NL-TEVA-560348ISR

PATIENT
  Age: 41 Year
  Sex: Male

DRUGS (3)
  1. DOXYCYCLINE TABLET 100MG [Concomitant]
     Dosage: DOSE UNKNOWN
     Route: 048
  2. AMOXICILLINE CAPSULE 500MG [Suspect]
     Active Substance: AMOXICILLIN
     Indication: UPPER RESPIRATORY TRACT INFECTION
     Dosage: 1000 MILLIGRAM DAILY; TWICE DAILY ONE PIECE
     Route: 048
     Dates: start: 20150323
  3. ANTIHISTAMINICUM [Concomitant]
     Dosage: DOSE UNKNOWN
     Route: 065

REACTIONS (3)
  - Pyrexia [Recovered/Resolved]
  - Drug reaction with eosinophilia and systemic symptoms [Recovered/Resolved]
  - Leukocytosis [Recovered/Resolved]

NARRATIVE: CASE EVENT DATE: 20150323
